FAERS Safety Report 5980274-6 (Version None)
Quarter: 2008Q4

REPORT INFORMATION
  Report Type: 
  Country: None (occurrence: None)
  Receive Date: 20081205
  Receipt Date: 20081127
  Transmission Date: 20090506
  Serious: Yes (Other)
  Sender: FDA-Public Use
  Company Number: PHHY2008JP28534

PATIENT
  Age: 54 Year
  Sex: Female

DRUGS (1)
  1. LOCHOL [Suspect]
     Indication: HYPERCHOLESTEROLAEMIA
     Dosage: 20 MG ONCE A DAY
     Route: 048

REACTIONS (2)
  - DEAFNESS [None]
  - STRESS [None]
